FAERS Safety Report 10974558 (Version 1)
Quarter: 2015Q2

REPORT INFORMATION
  Report Type: Spontaneous
  Country: US (occurrence: US)
  Receive Date: 20150401
  Receipt Date: 20150401
  Transmission Date: 20150821
  Serious: No
  Sender: FDA-Public Use
  Company Number: US-BAYER-2015-087498

PATIENT
  Age: 68 Year
  Sex: Female

DRUGS (3)
  1. BETASERON [Suspect]
     Active Substance: INTERFERON BETA-1B
     Indication: MULTIPLE SCLEROSIS
     Dosage: 0.3 MG, UNK
  2. AMPYRA [Concomitant]
     Active Substance: DALFAMPRIDINE
     Dosage: UNK, QD
  3. AMPYRA [Concomitant]
     Active Substance: DALFAMPRIDINE
     Dosage: UNK, BID

REACTIONS (1)
  - Dizziness [None]
